FAERS Safety Report 12528476 (Version 2)
Quarter: 2016Q4

REPORT INFORMATION
  Report Type: Spontaneous
  Country: JP (occurrence: JP)
  Receive Date: 20160705
  Receipt Date: 20161012
  Transmission Date: 20170207
  Serious: Yes (Other)
  Sender: FDA-Public Use
  Company Number: JP-MALLINCKRODT-T201503706

PATIENT
  Age: 50 Year
  Sex: Male
  Weight: 58 kg

DRUGS (33)
  1. METHADONE [Suspect]
     Active Substance: METHADONE HYDROCHLORIDE
     Indication: CANCER PAIN
     Dosage: 5 MG (15 MG DAILY DOSE)
     Route: 048
     Dates: start: 20150511, end: 20150518
  2. MAGLAX [Concomitant]
     Active Substance: MAGNESIUM OXIDE
     Dosage: 990 MG
     Route: 048
  3. PRIMPERAN [Concomitant]
     Active Substance: METOCLOPRAMIDE HYDROCHLORIDE
     Dosage: 10 MG
     Route: 051
     Dates: start: 20150514, end: 20150515
  4. CEFAZOLIN [Concomitant]
     Active Substance: CEFAZOLIN
     Dosage: 1 G
     Route: 051
     Dates: start: 20150521, end: 20150523
  5. GRANISETRON [Concomitant]
     Active Substance: GRANISETRON
     Dosage: 1 MG
     Route: 042
     Dates: start: 20150604, end: 20150604
  6. METHADONE [Suspect]
     Active Substance: METHADONE HYDROCHLORIDE
     Dosage: 15 MG (30 MG DAILY DOSE)
     Route: 048
     Dates: start: 20150525, end: 20150604
  7. EMEND [Suspect]
     Active Substance: APREPITANT
     Dosage: 80 MG DAILY DOSE
     Route: 048
     Dates: start: 20150605, end: 20150608
  8. CALONAL [Concomitant]
     Active Substance: ACETAMINOPHEN
     Dosage: 3200 MG
     Route: 048
     Dates: start: 20150515, end: 20150528
  9. ULTIVA [Concomitant]
     Active Substance: REMIFENTANIL HYDROCHLORIDE
     Dosage: 2 MG
     Route: 042
     Dates: start: 20150521, end: 20150521
  10. DECADRON [Concomitant]
     Active Substance: DEXAMETHASONE
     Dosage: 8 MG
     Route: 048
     Dates: start: 20150605, end: 20150607
  11. METHADONE [Suspect]
     Active Substance: METHADONE HYDROCHLORIDE
     Dosage: 10 MG (20 MG DAILY DOSE)
     Route: 048
     Dates: start: 20150604, end: 20150612
  12. METHADONE [Suspect]
     Active Substance: METHADONE HYDROCHLORIDE
     Dosage: 15 MG (30 MG DAILY DOSE)
     Route: 048
     Dates: start: 20150612
  13. OXINORM [Concomitant]
     Active Substance: OXYCODONE HYDROCHLORIDE
     Dosage: 15 MG, PRN
     Route: 048
     Dates: start: 20150510
  14. NOVAMIN [Concomitant]
     Active Substance: PROCHLORPERAZINE MALEATE
     Dosage: 15 MG
     Route: 048
     Dates: end: 20150520
  15. AMITIZA [Concomitant]
     Active Substance: LUBIPROSTONE
     Indication: PROPHYLAXIS
     Dosage: 48 ?G
     Route: 048
     Dates: start: 20150516, end: 20150526
  16. ALPRAZOLAM. [Concomitant]
     Active Substance: ALPRAZOLAM
     Indication: PROPHYLAXIS
     Dosage: 0.4 MG
     Route: 048
     Dates: start: 20150521, end: 20150525
  17. ZOMETA [Concomitant]
     Active Substance: ZOLEDRONIC ACID
     Dosage: 4 MG
     Route: 041
     Dates: start: 20150511, end: 20150511
  18. OPYSTAN [Concomitant]
     Active Substance: MEPERIDINE
     Dosage: 35 MG
     Route: 051
     Dates: start: 20150520, end: 20150520
  19. LEVOFOLINATE [Concomitant]
     Active Substance: LEVOLEUCOVORIN CALCIUM
     Dosage: 325 MG
     Route: 041
     Dates: start: 20150604, end: 20150604
  20. DEXART [Concomitant]
     Active Substance: DEXAMETHASONE SODIUM PHOSPHATE
     Dosage: 9.9 MG
     Route: 051
     Dates: start: 20150604, end: 20150604
  21. ALFACALCIDOL [Concomitant]
     Active Substance: ALFACALCIDOL
     Dosage: 2 MCG
     Route: 048
     Dates: start: 20150610
  22. ELPLAT [Concomitant]
     Active Substance: OXALIPLATIN
     Dosage: 135 MG
     Route: 041
     Dates: start: 20150604, end: 20150604
  23. CAMPTO [Concomitant]
     Active Substance: IRINOTECAN
     Dosage: 292 MG
     Route: 041
     Dates: start: 20150604, end: 20150604
  24. METHADONE [Suspect]
     Active Substance: METHADONE HYDROCHLORIDE
     Dosage: 10 MG (20 MG DAILY DOSE)
     Route: 048
     Dates: start: 20150518, end: 20150524
  25. EMEND [Suspect]
     Active Substance: APREPITANT
     Indication: PRODUCT USED FOR UNKNOWN INDICATION
     Dosage: 125 MG DAILY DOSE
     Route: 048
     Dates: start: 20150604, end: 20150604
  26. BARYTGEN [Concomitant]
     Dosage: 10 ML
     Route: 048
     Dates: start: 20150520, end: 20150520
  27. SENNOSIDE [Concomitant]
     Active Substance: SENNOSIDES
     Dosage: 24 MG
     Route: 048
  28. NEXIUM [Concomitant]
     Active Substance: ESOMEPRAZOLE MAGNESIUM
     Dosage: 10 MG
     Route: 048
  29. LYRICA [Concomitant]
     Active Substance: PREGABALIN
     Dosage: 150 MG
     Route: 048
     Dates: end: 20150527
  30. CALCIUM CHLORIDE. [Concomitant]
     Active Substance: CALCIUM CHLORIDE
     Dosage: 800 MG
     Route: 051
     Dates: start: 20150513
  31. FENTANYL CITRATE. [Concomitant]
     Active Substance: FENTANYL CITRATE
     Dosage: 0.1 MG
     Route: 051
     Dates: start: 20150519, end: 20150521
  32. CELECOX [Concomitant]
     Active Substance: CELECOXIB
     Dosage: 200 MG
     Route: 048
  33. FLUOROURACIL. [Concomitant]
     Active Substance: FLUOROURACIL
     Dosage: 3900 MG
     Route: 051
     Dates: start: 20150604, end: 20150604

REACTIONS (2)
  - Electrocardiogram QT prolonged [Recovered/Resolved]
  - Hypocalcaemia [Recovering/Resolving]

NARRATIVE: CASE EVENT DATE: 20150512
